FAERS Safety Report 12721300 (Version 1)
Quarter: 2016Q3

REPORT INFORMATION
  Report Type: Spontaneous
  Country: US (occurrence: US)
  Receive Date: 20160906
  Receipt Date: 20160906
  Transmission Date: 20161109
  Serious: Yes (Hospitalization)
  Sender: FDA-Public Use
  Company Number: None

PATIENT
  Age: 59 Year
  Sex: Male
  Weight: 90.72 kg

DRUGS (22)
  1. NORCO [Concomitant]
     Active Substance: ACETAMINOPHEN\HYDROCODONE BITARTRATE
  2. VIIBRYD [Concomitant]
     Active Substance: VILAZODONE HYDROCHLORIDE
  3. ALASKAN [Concomitant]
  4. CREATOR [Concomitant]
  5. LEVITRA [Concomitant]
     Active Substance: VARDENAFIL HYDROCHLORIDE TRIHYDRATE
  6. LOVASA [Concomitant]
  7. STRATTERA [Concomitant]
     Active Substance: ATOMOXETINE HYDROCHLORIDE
  8. LYRICA [Concomitant]
     Active Substance: PREGABALIN
  9. GLUCOSAMINE [Concomitant]
     Active Substance: GLUCOSAMINE
  10. TESTOPEL [Suspect]
     Active Substance: TESTOSTERONE
     Indication: BLOOD TESTOSTERONE DECREASED
     Dosage: 10 PELLETS 4 TO 5 MONTHS GIVEN INTO/UNDER THE SKIN
  11. TRAZODONE [Concomitant]
     Active Substance: TRAZODONE HYDROCHLORIDE
  12. ASPRIN [Concomitant]
     Active Substance: ASPIRIN
  13. ANASTROZOLE. [Concomitant]
     Active Substance: ANASTROZOLE
  14. VITAMIN C [Concomitant]
     Active Substance: ASCORBIC ACID
  15. AMBIEN [Concomitant]
     Active Substance: ZOLPIDEM TARTRATE
  16. CHONDROITIN [Concomitant]
     Active Substance: CHONDROITIN
  17. VITAMIN D [Concomitant]
     Active Substance: CHOLECALCIFEROL
  18. IODINE. [Concomitant]
     Active Substance: IODINE
  19. THERA-LAX [Concomitant]
  20. TREXAMET [Concomitant]
  21. TELMISARTAN. [Concomitant]
     Active Substance: TELMISARTAN
  22. REACTED IRON [Concomitant]

REACTIONS (5)
  - Dizziness [None]
  - Product quality issue [None]
  - Blood testosterone decreased [None]
  - Treatment failure [None]
  - Asthenia [None]

NARRATIVE: CASE EVENT DATE: 20160418
